FAERS Safety Report 23466972 (Version 3)
Quarter: 2024Q2

REPORT INFORMATION
  Report Type: Spontaneous
  Country: US (occurrence: US)
  Receive Date: 20240201
  Receipt Date: 20240522
  Transmission Date: 20240716
  Serious: No
  Sender: FDA-Public Use
  Company Number: US-BRISTOL-MYERS SQUIBB COMPANY-2024-015819

PATIENT
  Age: 73 Year
  Sex: Female

DRUGS (1)
  1. LENALIDOMIDE [Suspect]
     Active Substance: LENALIDOMIDE
     Indication: Crohn^s disease
     Dosage: FREQUENCY: TAKE 1 CAPSULE BY MOUTH EVERY MONDAY, WEDNESDAY, AND FRIDAY
     Route: 048

REACTIONS (4)
  - Product dose omission in error [Unknown]
  - Off label use [Unknown]
  - Laboratory test abnormal [Unknown]
  - White blood cell disorder [Not Recovered/Not Resolved]
